FAERS Safety Report 15455715 (Version 2)
Quarter: 2018Q4

REPORT INFORMATION
  Report Type: Spontaneous
  Country: US (occurrence: US)
  Receive Date: 20181002
  Receipt Date: 20181108
  Transmission Date: 20190204
  Serious: Yes (Hospitalization, Other)
  Sender: FDA-Public Use
  Company Number: US-PFIZER INC-2018333923

PATIENT
  Age: 53 Year
  Sex: Female
  Weight: 85 kg

DRUGS (2)
  1. IBRANCE [Suspect]
     Active Substance: PALBOCICLIB
     Indication: CHORIOCARCINOMA
     Dosage: 100 MG, UNK
     Dates: start: 201807
  2. IBRANCE [Suspect]
     Active Substance: PALBOCICLIB
     Dosage: 125 MG, 1X/DAY
     Route: 048

REACTIONS (8)
  - Fatigue [Unknown]
  - Pericardial effusion [Recovering/Resolving]
  - Hypoaesthesia [Unknown]
  - Neoplasm progression [Unknown]
  - Product use in unapproved indication [Unknown]
  - Product dispensing error [Unknown]
  - Pain in extremity [Unknown]
  - Chest pain [Unknown]

NARRATIVE: CASE EVENT DATE: 201807
